FAERS Safety Report 16957162 (Version 7)
Quarter: 2022Q1

REPORT INFORMATION
  Report Type: Report from Study
  Country: CN (occurrence: None)
  Receive Date: 20191024
  Receipt Date: 20220316
  Transmission Date: 20220423
  Serious: Yes (Life-Threatening, Hospitalization, Other)
  Sender: FDA-Public Use
  Company Number: CN-ROCHE-2251170

PATIENT
  Age: 55 Year
  Sex: Female
  Weight: 55.6 kg

DRUGS (66)
  1. PLACEBO [Suspect]
     Active Substance: UNSPECIFIED INGREDIENT
     Indication: Ovarian cancer
     Dosage: MOST RECENT DOSE ON 14/NOV/2019
     Route: 042
     Dates: start: 20180921
  2. BEVACIZUMAB [Suspect]
     Active Substance: BEVACIZUMAB
     Indication: Ovarian cancer
     Dosage: DATE OF MOST RECENT DOSE PRIOR TO ONSET OF THE EVENT: 20/JAN/2019 (760 MG)?ON 01/SEP/2019, MOST RECE
     Route: 042
     Dates: start: 20181015
  3. BEVACIZUMAB [Suspect]
     Active Substance: BEVACIZUMAB
     Dosage: MOST RECENT DOSE ON 14/NOV/2019 (760 MG)
     Route: 042
     Dates: start: 20181015
  4. PACLITAXEL [Suspect]
     Active Substance: PACLITAXEL
     Indication: Ovarian cancer
     Dosage: DATE OF MOST RECENT DOSE PRIOR TO ONSET OF THE EVENT: 20/JAN/2019 (250 MG)?DATE OF MOST RECENT DOSE
     Route: 042
     Dates: start: 20180921
  5. CARBOPLATIN [Suspect]
     Active Substance: CARBOPLATIN
     Indication: Ovarian cancer
     Dosage: DATE OF MOST RECENT DOSE PRIOR TO ONSET OF THE EVENT: 20/JAN/2019 (470 MG)?DATE OF MOST RECENT DOSE
     Route: 042
     Dates: start: 20180921
  6. FERRIC POLYSACCHARIDE COMPLEX [Concomitant]
     Active Substance: FERRIC POLYSACCHARIDE COMPLEX
     Indication: Anaemia
     Dates: start: 20181121
  7. DEXAMETHASONE ACETATE [Concomitant]
     Active Substance: DEXAMETHASONE ACETATE
     Indication: Platelet count increased
     Route: 048
     Dates: start: 20181225, end: 20181225
  8. LORATADINE [Concomitant]
     Active Substance: LORATADINE
     Dosage: PREVENT ALLERGY
     Dates: start: 20181226, end: 20181226
  9. LORATADINE [Concomitant]
     Active Substance: LORATADINE
     Dates: start: 20190901, end: 20190901
  10. LORATADINE [Concomitant]
     Active Substance: LORATADINE
     Dates: start: 20190926, end: 20190926
  11. LORATADINE [Concomitant]
     Active Substance: LORATADINE
     Dates: start: 20190928, end: 20190928
  12. LORATADINE [Concomitant]
     Active Substance: LORATADINE
     Dates: start: 20191022, end: 20191022
  13. LORATADINE [Concomitant]
     Active Substance: LORATADINE
     Dates: start: 20191114, end: 20191114
  14. CIMETIDINE [Concomitant]
     Active Substance: CIMETIDINE
     Dosage: PREVENT ALLERGY
     Dates: start: 20181226, end: 20181226
  15. CIMETIDINE [Concomitant]
     Active Substance: CIMETIDINE
     Dates: start: 20190901, end: 20190901
  16. CIMETIDINE [Concomitant]
     Active Substance: CIMETIDINE
     Dates: start: 20190926, end: 20190926
  17. CIMETIDINE [Concomitant]
     Active Substance: CIMETIDINE
     Dates: start: 20191022, end: 20191022
  18. CIMETIDINE [Concomitant]
     Active Substance: CIMETIDINE
     Dates: start: 20191114, end: 20191114
  19. DEXAMETHASONE SODIUM PHOSPHATE [Concomitant]
     Active Substance: DEXAMETHASONE SODIUM PHOSPHATE
     Dosage: PREVENT ALLERGY
     Route: 042
     Dates: start: 20181226, end: 20181226
  20. DEXAMETHASONE SODIUM PHOSPHATE [Concomitant]
     Active Substance: DEXAMETHASONE SODIUM PHOSPHATE
     Dosage: PREVENT ALLERGY
     Route: 042
     Dates: start: 20190901, end: 20190901
  21. DEXAMETHASONE SODIUM PHOSPHATE [Concomitant]
     Active Substance: DEXAMETHASONE SODIUM PHOSPHATE
     Route: 042
     Dates: start: 20190926, end: 20190926
  22. DEXAMETHASONE SODIUM PHOSPHATE [Concomitant]
     Active Substance: DEXAMETHASONE SODIUM PHOSPHATE
     Route: 042
     Dates: start: 20190926, end: 20190926
  23. DEXAMETHASONE SODIUM PHOSPHATE [Concomitant]
     Active Substance: DEXAMETHASONE SODIUM PHOSPHATE
     Route: 042
     Dates: start: 20190928, end: 20190928
  24. DEXAMETHASONE SODIUM PHOSPHATE [Concomitant]
     Active Substance: DEXAMETHASONE SODIUM PHOSPHATE
     Route: 042
     Dates: start: 20190929, end: 20191001
  25. DEXAMETHASONE SODIUM PHOSPHATE [Concomitant]
     Active Substance: DEXAMETHASONE SODIUM PHOSPHATE
     Route: 042
     Dates: start: 20190929, end: 20191002
  26. DEXAMETHASONE SODIUM PHOSPHATE [Concomitant]
     Active Substance: DEXAMETHASONE SODIUM PHOSPHATE
     Route: 042
     Dates: start: 20191004, end: 20191004
  27. DEXAMETHASONE SODIUM PHOSPHATE [Concomitant]
     Active Substance: DEXAMETHASONE SODIUM PHOSPHATE
     Route: 042
     Dates: start: 20191006, end: 20191006
  28. DEXAMETHASONE SODIUM PHOSPHATE [Concomitant]
     Active Substance: DEXAMETHASONE SODIUM PHOSPHATE
     Route: 042
     Dates: start: 20191022, end: 20191022
  29. DEXAMETHASONE SODIUM PHOSPHATE [Concomitant]
     Active Substance: DEXAMETHASONE SODIUM PHOSPHATE
     Route: 042
     Dates: start: 20191114, end: 20191114
  30. PALONOSETRON [Concomitant]
     Active Substance: PALONOSETRON
     Indication: Vomiting
     Dates: start: 20181226, end: 20181226
  31. PALONOSETRON [Concomitant]
     Active Substance: PALONOSETRON
     Dates: start: 20190120, end: 20190120
  32. OMEPRAZOLE SODIUM [Concomitant]
     Active Substance: OMEPRAZOLE SODIUM
     Dosage: PROTECT GASTRIC MUCOSA
     Dates: start: 20181226, end: 20181226
  33. OMEPRAZOLE SODIUM [Concomitant]
     Active Substance: OMEPRAZOLE SODIUM
     Dates: start: 20190901, end: 20190901
  34. OMEPRAZOLE SODIUM [Concomitant]
     Active Substance: OMEPRAZOLE SODIUM
     Dates: start: 20191022, end: 20191024
  35. OMEPRAZOLE SODIUM [Concomitant]
     Active Substance: OMEPRAZOLE SODIUM
     Dates: start: 20191114, end: 20191114
  36. GLUTATHIONE REDUCED [Concomitant]
     Dates: start: 20181226, end: 20181229
  37. GLUTATHIONE REDUCED [Concomitant]
     Dosage: PROTECT LIVER
     Dates: start: 20190901, end: 20190901
  38. GLUTATHIONE REDUCED [Concomitant]
     Dates: start: 20190926, end: 20191004
  39. GLUTATHIONE REDUCED [Concomitant]
     Dates: start: 20191022, end: 20191024
  40. GLUTATHIONE REDUCED [Concomitant]
     Dates: start: 20191114, end: 20191114
  41. FUROSEMIDE [Concomitant]
     Active Substance: FUROSEMIDE
     Indication: Polyuria
     Dates: start: 20181226, end: 20181226
  42. BETAHISTINE [Concomitant]
     Active Substance: BETAHISTINE
     Indication: Dizziness
     Dates: start: 20181228, end: 20181228
  43. HYDROCHLOROTHIAZIDE\IRBESARTAN [Concomitant]
     Active Substance: HYDROCHLOROTHIAZIDE\IRBESARTAN
     Dates: start: 20190221
  44. OMEPRAZOLE SODIUM [Concomitant]
     Active Substance: OMEPRAZOLE SODIUM
     Dosage: PROTECT GASTRIC MUCOSA
     Dates: start: 20190926, end: 20190926
  45. PROMETHAZINE HYDROCHLORIDE [Concomitant]
     Active Substance: PROMETHAZINE HYDROCHLORIDE
     Dates: start: 20190926, end: 20190926
  46. PROMETHAZINE HYDROCHLORIDE [Concomitant]
     Active Substance: PROMETHAZINE HYDROCHLORIDE
     Dates: start: 20190928, end: 20190928
  47. PROMETHAZINE HYDROCHLORIDE [Concomitant]
     Active Substance: PROMETHAZINE HYDROCHLORIDE
     Dates: start: 20190929, end: 20190930
  48. PROMETHAZINE HYDROCHLORIDE [Concomitant]
     Active Substance: PROMETHAZINE HYDROCHLORIDE
     Route: 030
  49. MAGNESIUM ISOGLYCYRRHIZINATE [Concomitant]
     Active Substance: MAGNESIUM ISOGLYCYRRHIZINATE
     Dates: start: 20190927, end: 20191004
  50. OPRELVEKIN [Concomitant]
     Active Substance: OPRELVEKIN
     Indication: Platelet count increased
     Dates: start: 20190927, end: 20191010
  51. PLATELETS [Concomitant]
     Active Substance: HUMAN PLATELET, ALLOGENIC
     Indication: Platelet count increased
     Dates: start: 20190928, end: 20190928
  52. PLATELETS [Concomitant]
     Active Substance: HUMAN PLATELET, ALLOGENIC
     Dates: start: 20190929, end: 20191002
  53. PLATELETS [Concomitant]
     Active Substance: HUMAN PLATELET, ALLOGENIC
     Dosage: 20 UNITS
     Dates: start: 20191004, end: 20191004
  54. PLATELETS [Concomitant]
     Active Substance: HUMAN PLATELET, ALLOGENIC
     Dates: start: 20191006, end: 20191006
  55. HETASTARCH [Concomitant]
     Active Substance: HETASTARCH
     Indication: Hypovolaemia
     Dates: start: 20190928, end: 20190928
  56. SODIUM CHLORIDE [Concomitant]
     Active Substance: SODIUM CHLORIDE
     Dates: start: 20190928, end: 20190928
  57. THROMBOPOIETIN [Concomitant]
     Active Substance: THROMBOPOIETIN
     Indication: Platelet count increased
     Dates: start: 20190928, end: 20191010
  58. LACTULOSE [Concomitant]
     Active Substance: LACTULOSE
     Indication: Constipation
     Dates: start: 20190929, end: 20190929
  59. LACTULOSE [Concomitant]
     Active Substance: LACTULOSE
     Dates: start: 20191020, end: 20191023
  60. HUMAN IMMUNOGLOBULIN G [Concomitant]
     Active Substance: HUMAN IMMUNOGLOBULIN G
     Dates: start: 20191005, end: 20191005
  61. HUMAN-ALBUMIN [Concomitant]
     Indication: Hypoalbuminaemia
     Dates: start: 20191006, end: 20191006
  62. PHOSPHOLIPID [Concomitant]
     Active Substance: PHOSPHOLIPID
     Dates: start: 20191022, end: 20191024
  63. AMOXICILLIN\CLAVULANATE POTASSIUM [Concomitant]
     Active Substance: AMOXICILLIN\CLAVULANATE POTASSIUM
     Dates: start: 20191114, end: 20191114
  64. PIPERAZINE BISFERULATE [Concomitant]
     Active Substance: PIPERAZINE BISFERULATE
     Indication: Proteinuria
     Dates: start: 20191114, end: 20191114
  65. LIDOCAINE HYDROCHLORIDE [Concomitant]
     Active Substance: LIDOCAINE HYDROCHLORIDE
     Dates: start: 20191224, end: 20191224
  66. GLYCOSAMINOGLYCANS [Concomitant]
     Active Substance: GLYCOSAMINOGLYCANS
     Dates: start: 20200116, end: 20200116

REACTIONS (7)
  - Hypertension [Recovered/Resolved]
  - Anaphylactic shock [Recovered/Resolved]
  - Bacteraemia [Recovered/Resolved]
  - Haematuria [Recovered/Resolved]
  - Infusion related reaction [Recovered/Resolved]
  - Bacteraemia [Recovered/Resolved]
  - Hypertension [Recovered/Resolved]

NARRATIVE: CASE EVENT DATE: 20190122
